FAERS Safety Report 20518529 (Version 1)
Quarter: 2022Q1

REPORT INFORMATION
  Report Type: Spontaneous
  Country: US (occurrence: None)
  Receive Date: 20220225
  Receipt Date: 20220225
  Transmission Date: 20220423
  Serious: Yes (Life-Threatening, Hospitalization)
  Sender: FDA-Public Use
  Company Number: None

PATIENT
  Age: 63 Year
  Sex: Male

DRUGS (2)
  1. AMIODARONE [Suspect]
     Active Substance: AMIODARONE
     Indication: Atrial fibrillation
     Dosage: FREQUENCY : ONCE;?
     Route: 042
     Dates: start: 20220210, end: 20220210
  2. AMIODARONE [Suspect]
     Active Substance: AMIODARONE
     Indication: Mitral valve repair

REACTIONS (2)
  - Abdominal pain [None]
  - Pulseless electrical activity [None]

NARRATIVE: CASE EVENT DATE: 20220210
